FAERS Safety Report 24177506 (Version 1)
Quarter: 2024Q3

REPORT INFORMATION
  Report Type: Spontaneous
  Country: IT (occurrence: IT)
  Receive Date: 20240806
  Receipt Date: 20240806
  Transmission Date: 20241017
  Serious: Yes (Other)
  Sender: ROCHE
  Company Number: None

PATIENT
  Age: 6 Year
  Sex: Female

DRUGS (12)
  1. RITUXIMAB [Interacting]
     Active Substance: RITUXIMAB
     Indication: Burkitt^s lymphoma
     Route: 042
  2. ETOPOSIDE [Interacting]
     Active Substance: ETOPOSIDE
     Indication: Burkitt^s lymphoma
     Route: 065
  3. DAUNORUBICIN [Interacting]
     Active Substance: DAUNORUBICIN
     Indication: Burkitt^s lymphoma
     Route: 065
  4. METHOTREXATE [Interacting]
     Active Substance: METHOTREXATE
     Indication: Burkitt^s lymphoma
     Route: 065
  5. VINCRISTINE [Interacting]
     Active Substance: VINCRISTINE
     Indication: Burkitt^s lymphoma
     Route: 065
  6. IFOSFAMIDE [Interacting]
     Active Substance: IFOSFAMIDE
     Indication: Burkitt^s lymphoma
     Route: 065
  7. CYTARABINE [Interacting]
     Active Substance: CYTARABINE
     Indication: Burkitt^s lymphoma
     Route: 065
  8. RALTEGRAVIR [Interacting]
     Active Substance: RALTEGRAVIR
     Indication: HIV infection
     Route: 065
  9. VINDESINE [Interacting]
     Active Substance: VINDESINE
     Indication: Burkitt^s lymphoma
     Route: 065
  10. DEXAMETHASONE [Interacting]
     Active Substance: DEXAMETHASONE
     Indication: Burkitt^s lymphoma
     Route: 065
  11. CYCLOPHOSPHAMIDE [Interacting]
     Active Substance: CYCLOPHOSPHAMIDE
     Indication: Burkitt^s lymphoma
     Route: 065
  12. EMTRICITABINE\TENOFOVIR [Interacting]
     Active Substance: EMTRICITABINE\TENOFOVIR
     Indication: HIV infection
     Route: 065

REACTIONS (2)
  - Drug interaction [Recovered/Resolved]
  - Neutropenia [Recovered/Resolved]
